FAERS Safety Report 13325350 (Version 1)
Quarter: 2017Q1

REPORT INFORMATION
  Report Type: Spontaneous
  Country: US (occurrence: US)
  Receive Date: 20170310
  Receipt Date: 20170310
  Transmission Date: 20170428
  Serious: No
  Sender: FDA-Public Use
  Company Number: US-PFIZER INC-2017101066

PATIENT
  Age: 78 Year
  Sex: Female

DRUGS (2)
  1. ALDACTONE [Suspect]
     Active Substance: SPIRONOLACTONE
     Indication: BLOOD POTASSIUM DECREASED
     Dosage: UNK
     Dates: start: 20140708
  2. DIOVAN [Concomitant]
     Active Substance: VALSARTAN
     Dosage: UNK

REACTIONS (1)
  - Insomnia [Unknown]
